FAERS Safety Report 7999335-5 (Version None)
Quarter: 2011Q4

REPORT INFORMATION
  Report Type: 
  Country: None (occurrence: None)
  Receive Date: 20111221
  Receipt Date: 20111209
  Transmission Date: 20120403
  Serious: Yes (Hospitalization)
  Sender: FDA-Public Use
  Company Number: SE-PFIZER INC-2010115247

PATIENT
  Age: 62 Year
  Sex: Female
  Weight: 86.7 kg

DRUGS (18)
  1. DULOXETINE HYDROCHLORIDE [Suspect]
     Indication: DIABETIC NEUROPATHY
     Dosage: UNK
     Route: 048
     Dates: start: 20100421, end: 20100824
  2. PARACETAMOL [Concomitant]
     Indication: PAIN
     Dosage: UNK
     Dates: start: 20070101
  3. PREGABALIN [Suspect]
     Indication: DIABETIC NEUROPATHY
     Dosage: UNK
     Route: 048
     Dates: start: 20100421, end: 20100824
  4. SPIRIVA [Concomitant]
     Indication: RESPIRATION ABNORMAL
     Dosage: UNK
     Dates: start: 20030101, end: 20100820
  5. OXYCODONE [Concomitant]
     Indication: PAIN
     Dosage: UNK
  6. PULMICORT [Concomitant]
     Indication: RESPIRATION ABNORMAL
     Dosage: UNK
     Dates: start: 20030101
  7. SIMVASTATIN [Concomitant]
     Indication: HYPERLIPIDAEMIA
     Dosage: UNK
     Dates: start: 20031201
  8. LEVOTHYROXINE [Concomitant]
     Indication: HYPOTHYROIDISM
     Dosage: UNK
     Dates: start: 20030101
  9. METOCLOPRAMIDE [Concomitant]
     Indication: NAUSEA
     Dosage: UNK
     Dates: start: 20080101
  10. EMADINE [Concomitant]
     Indication: HYPERSENSITIVITY
     Dosage: UNK
     Dates: start: 20030101, end: 20100820
  11. LOCACORTEN [Concomitant]
     Indication: PRURITUS
     Dosage: UNK
     Dates: start: 20070101, end: 20100820
  12. NEXIUM [Concomitant]
     Indication: REFLUX GASTRITIS
     Dosage: UNK
     Dates: start: 20030101, end: 20100820
  13. PAPAVERIN [Concomitant]
     Indication: BLADDER PAIN
     Dosage: UNK
     Dates: start: 20080101, end: 20100820
  14. DESLORATADINE [Concomitant]
     Indication: RESPIRATION ABNORMAL
     Dosage: UNK
     Dates: start: 20070101, end: 20100820
  15. IRBESARTAN [Concomitant]
     Indication: HYPERTENSION
     Dosage: UNK
     Dates: start: 20030101, end: 20100820
  16. INOLAXOL [Concomitant]
     Indication: CONSTIPATION
     Dosage: UNK
     Dates: start: 20080101, end: 20100820
  17. MOVIPREP [Concomitant]
     Indication: CONSTIPATION
     Dosage: UNK
     Dates: start: 20080101, end: 20100820
  18. INSULIN [Concomitant]
     Indication: DIABETES MELLITUS
     Dosage: UNK
     Dates: start: 20030101

REACTIONS (1)
  - BRAIN CONTUSION [None]
